FAERS Safety Report 8495140-4 (Version None)
Quarter: 2012Q3

REPORT INFORMATION
  Report Type: 
  Country: None (occurrence: None)
  Receive Date: 20120702
  Receipt Date: 20120702
  Transmission Date: 20120928
  Serious: Yes (Other)
  Sender: FDA-Public Use
  Company Number: None

PATIENT
  Age: 36 Year
  Sex: Female
  Weight: 63 kg

DRUGS (1)
  1. MICRONOR [Suspect]
     Indication: ORAL CONTRACEPTION
     Dosage: 1 DAILY PO
     Route: 048
     Dates: start: 20120101, end: 20120627

REACTIONS (1)
  - AGE-RELATED MACULAR DEGENERATION [None]
